FAERS Safety Report 8428574-4 (Version None)
Quarter: 2012Q2

REPORT INFORMATION
  Report Type: 
  Country: None (occurrence: None)
  Receive Date: 20120606
  Receipt Date: 20120606
  Transmission Date: 20120825
  Serious: No
  Sender: FDA-Public Use
  Company Number: None

PATIENT
  Age: 76 Year
  Sex: Female
  Weight: 77.1115 kg

DRUGS (1)
  1. LOSARTAN POTASSIUM AND HYDROCHLOROTHIAZIDE [Suspect]
     Indication: HYPERTENSION
     Dosage: 1 TABLET DAILY PO
     Route: 048
     Dates: start: 20120227, end: 20120517

REACTIONS (7)
  - PAIN IN EXTREMITY [None]
  - JOINT SWELLING [None]
  - KIDNEY INFECTION [None]
  - BLOOD POTASSIUM DECREASED [None]
  - PRODUCT SUBSTITUTION ISSUE [None]
  - ERYTHEMA [None]
  - OEDEMA PERIPHERAL [None]
